FAERS Safety Report 26129872 (Version 1)
Quarter: 2025Q4

REPORT INFORMATION
  Report Type: Spontaneous
  Country: AE (occurrence: AE)
  Receive Date: 20251208
  Receipt Date: 20251208
  Transmission Date: 20260117
  Serious: Yes (Other)
  Sender: ASTELLAS
  Company Number: AE-ASTELLAS-2025-AER-066200

PATIENT
  Age: 55 Year
  Sex: Male

DRUGS (2)
  1. XOSPATA [Suspect]
     Active Substance: GILTERITINIB
     Indication: FLT3 gene mutation
     Route: 065
     Dates: start: 202509, end: 2025
  2. XOSPATA [Suspect]
     Active Substance: GILTERITINIB
     Indication: Acute myeloid leukaemia recurrent
     Route: 065
     Dates: start: 2025

REACTIONS (6)
  - Pancytopenia [Unknown]
  - Hypervolaemia [Unknown]
  - Hypertransaminasaemia [Unknown]
  - Thrombophlebitis [Unknown]
  - Underdose [Unknown]
  - Off label use [Unknown]

NARRATIVE: CASE EVENT DATE: 20250101
